FAERS Safety Report 9682942 (Version 1)
Quarter: 2013Q4

REPORT INFORMATION
  Report Type: Spontaneous
  Country: US (occurrence: None)
  Receive Date: 20131111
  Receipt Date: 20131111
  Transmission Date: 20140711
  Serious: Yes (Life-Threatening, Hospitalization)
  Sender: FDA-Public Use
  Company Number: None

PATIENT
  Age: 72 Year
  Sex: Female
  Weight: 94 kg

DRUGS (15)
  1. DABIGATRAN [Suspect]
     Indication: ATRIAL FIBRILLATION
     Route: 048
  2. CELEEXA 20 MG [Concomitant]
  3. ACETOMINOPHEN 650 MG [Concomitant]
  4. ALBUTEROL INHALER [Concomitant]
  5. NORVASC 5 MG [Concomitant]
  6. CELEBREX 200 MG [Concomitant]
  7. MYRBETRIQ 25 MG [Concomitant]
  8. NASONEX 50 MCG [Concomitant]
  9. CRESTOR 5 MG [Concomitant]
  10. CELEBREX 200 MG [Concomitant]
  11. FINASTERIDE 5 MG [Concomitant]
  12. FLOMAX 0.4 MG [Concomitant]
  13. TRAMADOL 150 MG [Concomitant]
  14. GABAPENTIN 300 MG [Concomitant]
  15. OMEPRAZOLE 20 MG [Concomitant]

REACTIONS (1)
  - Pericardial effusion [None]
